FAERS Safety Report 7981460-6 (Version None)
Quarter: 2011Q4

REPORT INFORMATION
  Report Type: 
  Country: None (occurrence: None)
  Receive Date: 20111213
  Receipt Date: 20111128
  Transmission Date: 20120403
  Serious: Yes (Other)
  Sender: FDA-Public Use
  Company Number: PI-06303

PATIENT
  Age: 71 Year
  Sex: Male

DRUGS (3)
  1. GENERAL ANESTHESIA [Concomitant]
  2. CHLORAPREP [Suspect]
     Indication: PREOPERATIVE CARE
     Dosage: 26ML X 2, ONCE, TOPICAL
     Route: 061
     Dates: start: 20111028
  3. CHLORAPREP [Suspect]
     Indication: INFECTION PROPHYLAXIS
     Dosage: 26ML X 2, ONCE, TOPICAL
     Route: 061
     Dates: start: 20111028

REACTIONS (2)
  - SKIN BURNING SENSATION [None]
  - BLISTER [None]
